FAERS Safety Report 6779235-9 (Version None)
Quarter: 2010Q2

REPORT INFORMATION
  Report Type: 
  Country: None (occurrence: None)
  Receive Date: 20100618
  Receipt Date: 20100610
  Transmission Date: 20101027
  Serious: Yes (Life-Threatening, Hospitalization)
  Sender: FDA-Public Use
  Company Number: DE-ROCHE-709069

PATIENT
  Sex: Male

DRUGS (7)
  1. AVASTIN [Suspect]
     Indication: MACULAR DEGENERATION
     Route: 065
     Dates: start: 20091218
  2. CASODEX [Concomitant]
  3. CORTISON [Concomitant]
  4. TELFAST [Concomitant]
  5. RENACOR [Concomitant]
  6. METOPROLOL TARTRATE [Concomitant]
  7. TORSEMIDE [Concomitant]

REACTIONS (5)
  - BLOOD COUNT ABNORMAL [None]
  - BREAST ENLARGEMENT [None]
  - DECREASED APPETITE [None]
  - HYPERSENSITIVITY [None]
  - WEIGHT DECREASED [None]
